FAERS Safety Report 18660224 (Version 1)
Quarter: 2020Q4

REPORT INFORMATION
  Report Type: Spontaneous
  Country: FR (occurrence: FR)
  Receive Date: 20201223
  Receipt Date: 20201223
  Transmission Date: 20210114
  Serious: Yes (Hospitalization)
  Sender: FDA-Public Use
  Company Number: FR-MYLANLABS-2020M1103505

PATIENT
  Age: 74 Year
  Sex: Male
  Weight: 115 kg

DRUGS (15)
  1. LERCAN [Interacting]
     Active Substance: LERCANIDIPINE
     Indication: HYPERTENSION
     Dosage: 20 MILLIGRAM, QD (2 IN THE MORNING)
     Route: 048
     Dates: start: 20200429
  2. NEORAL [Concomitant]
     Active Substance: CYCLOSPORINE
     Indication: TRANSPLANT
     Dosage: 100 MILLIGRAM, QD (MORNING AND EVENING)
     Route: 048
     Dates: start: 1998
  3. CELLCEPT [Concomitant]
     Active Substance: MYCOPHENOLATE MOFETIL\MYCOPHENOLATE MOFETIL HYDROCHLORIDE
     Indication: TRANSPLANT
     Dosage: 2000 MILLIGRAM, QD (MORNING AND EVENING)
     Route: 048
     Dates: start: 1998
  4. CARDENSIEL [Concomitant]
     Active Substance: BISOPROLOL FUMARATE
     Indication: HYPERTENSION
     Dosage: 10 MILLIGRAM, QD
     Route: 048
  5. PRAVASTATIN SODIUM. [Concomitant]
     Active Substance: PRAVASTATIN SODIUM
     Indication: MYOCARDIAL ISCHAEMIA
     Dosage: 20 MILLIGRAM, QD (THE EVENING)
     Route: 048
  6. ENALAPRIL [Suspect]
     Active Substance: ENALAPRIL
     Indication: HYPERTENSION
     Dosage: 40 MILLIGRAM, QD
     Route: 048
     Dates: start: 2015
  7. LASILIX                            /00032601/ [Interacting]
     Active Substance: FUROSEMIDE
     Indication: HYPERTENSION
     Dosage: 100 MILLIGRAM, QD (60 MG IN THE MORNING AND 40 MG AT NOON)
     Route: 048
     Dates: start: 2015
  8. CORTANCYL [Concomitant]
     Active Substance: PREDNISONE
     Indication: TRANSPLANT
     Dosage: 5 MILLIGRAM, QD (IN THE MORNING)
     Route: 048
  9. ROVALCYTE [Concomitant]
     Active Substance: VALGANCICLOVIR HYDROCHLORIDE
     Indication: CYTOMEGALOVIRUS INFECTION
     Dosage: 450 MILLIGRAM, QOD
     Route: 048
     Dates: start: 20200604
  10. MAG 2                              /01486821/ [Concomitant]
     Active Substance: MAGNESIUM PIDOLATE
     Indication: HYPOMAGNESAEMIA
     Dosage: 4 DOSAGE FORM, QD (2 IN THE MORNING AND 2 IN THE EVENING)
     Route: 048
     Dates: start: 20200429
  11. EZETROL [Concomitant]
     Active Substance: EZETIMIBE
     Indication: MYOCARDIAL ISCHAEMIA
     Dosage: 10 MILLIGRAM, QD (THE EVENING)
     Route: 048
  12. DIFFU K [Concomitant]
     Active Substance: POTASSIUM CHLORIDE
     Indication: HYPOKALAEMIA
     Dosage: UNK UNK, TID (1-1-1)
     Route: 048
  13. CACIT VITAMINE D3 [Concomitant]
     Active Substance: CALCIUM CARBONATE\CHOLECALCIFEROL
     Indication: OSTEOPOROSIS PROPHYLAXIS
     Dosage: 2 DOSAGE FORM, QD (IN THE MORNING)
     Route: 048
  14. TRULICITY [Suspect]
     Active Substance: DULAGLUTIDE
     Indication: TYPE 2 DIABETES MELLITUS
     Dosage: 1.5 MILLIGRAM, QW
     Route: 058
     Dates: start: 20200924, end: 20201021
  15. ELIQUIS [Concomitant]
     Active Substance: APIXABAN
     Indication: ATRIAL FIBRILLATION
     Dosage: 5 MILLIGRAM, QD (MORNING AND EVENING)
     Route: 048
     Dates: start: 202001

REACTIONS (5)
  - Diarrhoea [Not Recovered/Not Resolved]
  - Weight decreased [Not Recovered/Not Resolved]
  - Drug interaction [Unknown]
  - Acute kidney injury [Not Recovered/Not Resolved]
  - Vomiting [Not Recovered/Not Resolved]

NARRATIVE: CASE EVENT DATE: 20201009
